FAERS Safety Report 6709439-2 (Version None)
Quarter: 2010Q2

REPORT INFORMATION
  Report Type: 
  Country: None (occurrence: None)
  Receive Date: 20100503
  Receipt Date: 20100503
  Transmission Date: 20101027
  Serious: Yes (Hospitalization)
  Sender: FDA-Public Use
  Company Number: None

PATIENT
  Sex: Female
  Weight: 68.9467 kg

DRUGS (2)
  1. FOSAMAX [Suspect]
     Indication: OSTEOPENIA
     Dosage: 5MG DAILY DAILY PO
     Route: 048
     Dates: start: 19971101
  2. FOSAMAX [Suspect]
     Indication: OSTEOPOROSIS
     Dosage: 5MG DAILY DAILY PO
     Route: 048
     Dates: start: 19971101

REACTIONS (1)
  - FEMUR FRACTURE [None]
